FAERS Safety Report 5794323-1 (Version None)
Quarter: 2008Q2

REPORT INFORMATION
  Report Type: 
  Country: None (occurrence: None)
  Receive Date: 20080625
  Receipt Date: 20080616
  Transmission Date: 20081010
  Serious: Yes (Other)
  Sender: FDA-Public Use
  Company Number: 2008SP012031

PATIENT
  Age: 65 Year
  Sex: Female

DRUGS (3)
  1. MIRALAX [Suspect]
     Indication: COLONOSCOPY
     Dosage: ;UNK;UNK
     Dates: start: 20080101
  2. SYNTHROID [Concomitant]
  3. ULTRAM [Concomitant]

REACTIONS (2)
  - RENAL CANCER [None]
  - RENAL FAILURE [None]
